FAERS Safety Report 24663405 (Version 1)
Quarter: 2024Q4

REPORT INFORMATION
  Report Type: Spontaneous
  Country: TR (occurrence: TR)
  Receive Date: 20241126
  Receipt Date: 20241126
  Transmission Date: 20250114
  Serious: Yes (Hospitalization, Other)
  Sender: EPIC PHARM
  Company Number: TR-EPICPHARMA-TR-2024EPCLIT01481

PATIENT
  Age: 15 Year
  Sex: Female

DRUGS (1)
  1. ISONIAZID [Suspect]
     Active Substance: ISONIAZID
     Indication: Product used for unknown indication
     Dosage: (100 MG EACH, EQUIVALENT TO 90 MG/KG) INGESTED 45 TABLETS
     Route: 048

REACTIONS (12)
  - Hypersensitivity myocarditis [Recovered/Resolved]
  - Status epilepticus [Recovered/Resolved]
  - Altered state of consciousness [Recovered/Resolved]
  - Hepatomegaly [Recovered/Resolved]
  - Encephalitis [Recovered/Resolved]
  - Toxicity to various agents [Recovered/Resolved]
  - Malaise [Recovered/Resolved]
  - Toxic encephalopathy [Recovered/Resolved]
  - Pyrexia [Recovered/Resolved]
  - Eosinophilia [Recovered/Resolved]
  - Hypotension [Recovered/Resolved]
  - Intentional overdose [Unknown]
